FAERS Safety Report 4733916-7 (Version None)
Quarter: 2005Q3

REPORT INFORMATION
  Report Type: 
  Country: None (occurrence: None)
  Receive Date: 20050729
  Receipt Date: 20050715
  Transmission Date: 20060218
  Serious: Yes (Hospitalization, Other)
  Sender: FDA-Public Use
  Company Number: L05-USA-02378-01

PATIENT
  Age: 10 Year
  Sex: Male

DRUGS (5)
  1. CARBAMAZEPINE [Suspect]
     Indication: CONVULSION
     Dosage: 100 MG TID
  2. ERYTHROMYCIN [Suspect]
     Indication: HAEMORRHAGE
     Dosage: 125 MG QID
  3. ERYTHROMYCIN [Suspect]
     Indication: SKIN LESION
     Dosage: 125 MG QID
  4. CLOBAZAM [Concomitant]
  5. VALPROIC ACID [Concomitant]

REACTIONS (21)
  - ATRIOVENTRICULAR BLOCK FIRST DEGREE [None]
  - ATRIOVENTRICULAR BLOCK SECOND DEGREE [None]
  - BASE EXCESS DECREASED [None]
  - BLOOD PH DECREASED [None]
  - BLOOD PRESSURE DIASTOLIC DECREASED [None]
  - BLOOD PRESSURE IMMEASURABLE [None]
  - BLOOD SODIUM DECREASED [None]
  - BODY TEMPERATURE DECREASED [None]
  - DRUG INTERACTION [None]
  - DRUG TOXICITY [None]
  - DYSPNOEA [None]
  - FEEDING DISORDER [None]
  - HAEMORRHAGE [None]
  - INFECTION [None]
  - NODAL ARRHYTHMIA [None]
  - PERIPHERAL COLDNESS [None]
  - PO2 DECREASED [None]
  - SINUS ARREST [None]
  - SKIN LESION [None]
  - SOMNOLENCE [None]
  - THERAPY NON-RESPONDER [None]
